FAERS Safety Report 16238245 (Version 18)
Quarter: 2021Q4

REPORT INFORMATION
  Report Type: Spontaneous
  Country: US (occurrence: US)
  Receive Date: 20190425
  Receipt Date: 20211213
  Transmission Date: 20220304
  Serious: Yes (Other)
  Sender: FDA-Public Use
  Company Number: US-PFIZER INC-2019155930

PATIENT
  Age: 42 Year
  Sex: Female
  Weight: 95.25 kg

DRUGS (17)
  1. LYRICA [Suspect]
     Active Substance: PREGABALIN
     Indication: Complex regional pain syndrome
     Dosage: 150 MG, 4X/DAY
     Route: 048
     Dates: start: 2005
  2. LYRICA [Suspect]
     Active Substance: PREGABALIN
     Indication: Pain in extremity
     Dosage: 150 MG, 3X/DAY
     Route: 048
     Dates: start: 200610
  3. LYRICA [Suspect]
     Active Substance: PREGABALIN
     Indication: Pain
     Dosage: UNK, 4X/DAY (150 QID)
     Dates: start: 2006
  4. LYRICA [Suspect]
     Active Substance: PREGABALIN
     Dosage: UNK, 4X/DAY
  5. LYRICA [Suspect]
     Active Substance: PREGABALIN
     Dosage: 1 DF, 4X/DAY
     Route: 048
  6. CYMBALTA [Concomitant]
     Active Substance: DULOXETINE HYDROCHLORIDE
     Indication: Neuropathy peripheral
     Dosage: 90 MG
     Route: 048
  7. TOPAMAX [Concomitant]
     Active Substance: TOPIRAMATE
     Indication: Complex regional pain syndrome
     Dosage: 100 MG
     Route: 048
  8. ATORVASTATIN [Concomitant]
     Active Substance: ATORVASTATIN
     Indication: Blood cholesterol
     Dosage: 40 MG, 1X/DAY
     Route: 048
  9. CLONIDINE [Concomitant]
     Active Substance: CLONIDINE
     Indication: Complex regional pain syndrome
     Dosage: 0.1 MG, 1X/DAY
     Route: 048
  10. LODINE [Concomitant]
     Active Substance: ETODOLAC
     Indication: Complex regional pain syndrome
     Dosage: 400 MG, 3X/DAY
     Route: 048
  11. LEXAPRO [Concomitant]
     Active Substance: ESCITALOPRAM OXALATE
     Indication: Complex regional pain syndrome
     Dosage: 20 MG, 1X/DAY
     Route: 048
  12. METFORMIN HYDROCHLORIDE [Concomitant]
     Active Substance: METFORMIN HYDROCHLORIDE
     Indication: Diabetes mellitus
     Dosage: 500 MG, 1X/DAY
     Route: 048
  13. PARAFON FORTE [Concomitant]
     Active Substance: CHLORZOXAZONE
     Indication: Complex regional pain syndrome
     Dosage: UNK, 3X/DAY (100 OR 150 MG TABLET)
     Route: 048
  14. PARAFON FORTE [Concomitant]
     Active Substance: CHLORZOXAZONE
     Indication: Muscle spasms
  15. FLEXERIL [Concomitant]
     Active Substance: CYCLOBENZAPRINE HYDROCHLORIDE
     Indication: Muscle spasms
     Dosage: 10 MG, 1X/DAY
     Route: 048
  16. FLEXERIL [Concomitant]
     Active Substance: CYCLOBENZAPRINE HYDROCHLORIDE
     Indication: Complex regional pain syndrome
  17. TYLENOL [Concomitant]
     Active Substance: ACETAMINOPHEN
     Indication: Pain
     Dosage: UNK, AS NEEDED

REACTIONS (5)
  - Drug dependence [Unknown]
  - Expired product administered [Unknown]
  - Sensitivity to weather change [Unknown]
  - Neuralgia [Unknown]
  - Pain [Unknown]

NARRATIVE: CASE EVENT DATE: 20060613
